FAERS Safety Report 4486450-6 (Version None)
Quarter: 2004Q4

REPORT INFORMATION
  Report Type: 
  Country: None (occurrence: None)
  Receive Date: 20041026
  Receipt Date: 20041026
  Transmission Date: 20050328
  Serious: Yes (Other)
  Sender: FDA-Public Use
  Company Number: None

PATIENT
  Age: 64 Year
  Sex: Male
  Weight: 79.3795 kg

DRUGS (1)
  1. KAOPECTATE 8 FL OZ PFIZER? [Suspect]
     Indication: DIARRHOEA
     Dosage: 30 ML EV 1/2 TO 1 HR ORAL
     Route: 048
     Dates: start: 20041122, end: 20041124

REACTIONS (2)
  - DRUG INEFFECTIVE [None]
  - PHARMACEUTICAL PRODUCT COMPLAINT [None]
